FAERS Safety Report 9434853 (Version 1)
Quarter: 2013Q3

REPORT INFORMATION
  Report Type: Spontaneous
  Country: FR (occurrence: FR)
  Receive Date: 20130801
  Receipt Date: 20130801
  Transmission Date: 20140515
  Serious: Yes (Hospitalization)
  Sender: FDA-Public Use
  Company Number: FR-B.I. PHARMACEUTICALS,INC./RIDGEFIELD-2013-FF-01948FF

PATIENT
  Age: 80 Year
  Sex: Female
  Weight: 48.3 kg

DRUGS (3)
  1. PRADAXA [Suspect]
     Indication: THROMBOSIS PROPHYLAXIS
     Route: 048
     Dates: start: 20121204
  2. LEVOTHYROX [Concomitant]
  3. APROVEL [Concomitant]
     Indication: HYPERTENSION
     Dates: start: 20121204

REACTIONS (1)
  - Transient ischaemic attack [Recovered/Resolved]
